FAERS Safety Report 20445202 (Version 1)
Quarter: 2022Q1

REPORT INFORMATION
  Report Type: Spontaneous
  Country: US (occurrence: US)
  Receive Date: 20220208
  Receipt Date: 20220208
  Transmission Date: 20220423
  Serious: No
  Sender: FDA-Public Use
  Company Number: US-FERAPHARMA-2021-US-022650

PATIENT
  Age: 22 Year
  Sex: Female
  Weight: 74.39 kg

DRUGS (2)
  1. KEFLEX [Suspect]
     Active Substance: CEPHALEXIN
     Indication: Urinary tract infection
     Dosage: TWICE DAILY FOR 5 DAYS
     Route: 048
     Dates: start: 20210919, end: 20210923
  2. PLAN B [Suspect]
     Active Substance: LEVONORGESTREL
     Dates: start: 20210907, end: 20210907

REACTIONS (1)
  - Vaginal haemorrhage [Unknown]

NARRATIVE: CASE EVENT DATE: 20210924
